FAERS Safety Report 9341728 (Version 1)
Quarter: 2013Q2

REPORT INFORMATION
  Report Type: Spontaneous
  Country: US (occurrence: US)
  Receive Date: 20130611
  Receipt Date: 20130611
  Transmission Date: 20140414
  Serious: Yes (Hospitalization)
  Sender: FDA-Public Use
  Company Number: US-BAYER-2013-071350

PATIENT
  Age: 20 Year
  Sex: Female
  Weight: 72.56 kg

DRUGS (2)
  1. YAZ [Suspect]
  2. ADVIL [Concomitant]
     Dosage: UNK
     Dates: start: 20120528

REACTIONS (1)
  - Pulmonary embolism [None]
